FAERS Safety Report 18394006 (Version 1)
Quarter: 2020Q4

REPORT INFORMATION
  Report Type: Report from Study
  Country: US (occurrence: US)
  Receive Date: 20201016
  Receipt Date: 20201016
  Transmission Date: 20210114
  Serious: Yes (Hospitalization)
  Sender: FDA-Public Use
  Company Number: US-EISAI MEDICAL RESEARCH-EC-2020-081826

PATIENT
  Age: 58 Year
  Sex: Female

DRUGS (4)
  1. ZOLOFT [Concomitant]
     Active Substance: SERTRALINE HYDROCHLORIDE
  2. DAYVIGO [Suspect]
     Active Substance: LEMBOREXANT
     Indication: INSOMNIA
     Route: 048
     Dates: start: 20200929, end: 20201002
  3. XANAX [Concomitant]
     Active Substance: ALPRAZOLAM
  4. CYMBALTA [Concomitant]
     Active Substance: DULOXETINE HYDROCHLORIDE

REACTIONS (11)
  - Thinking abnormal [Unknown]
  - Obsessive thoughts [Unknown]
  - Pressure of speech [Unknown]
  - Loss of consciousness [Unknown]
  - Abnormal behaviour [Unknown]
  - Panic attack [Unknown]
  - Emotional disorder [Unknown]
  - Memory impairment [Unknown]
  - Delirium [Not Recovered/Not Resolved]
  - Insomnia [Unknown]
  - Dizziness [Unknown]

NARRATIVE: CASE EVENT DATE: 20200930
